FAERS Safety Report 9412159 (Version 1)
Quarter: 2013Q3

REPORT INFORMATION
  Report Type: Report from Study
  Country: AU (occurrence: AU)
  Receive Date: 20130722
  Receipt Date: 20130722
  Transmission Date: 20140515
  Serious: Yes (Other)
  Sender: FDA-Public Use
  Company Number: AU-ROCHE-1250822

PATIENT
  Age: 58 Year
  Sex: Female

DRUGS (14)
  1. ACTEMRA [Suspect]
     Indication: RHEUMATOID ARTHRITIS
     Route: 042
     Dates: start: 20111012
  2. LYRICA [Concomitant]
     Indication: PAIN
     Route: 048
     Dates: start: 20130603
  3. MS CONTIN [Concomitant]
     Indication: PAIN
     Route: 048
  4. LASIX [Concomitant]
     Route: 048
     Dates: start: 1998
  5. LASIX [Concomitant]
     Route: 065
  6. PROGOUT [Concomitant]
     Indication: GOUT
     Route: 048
  7. MEGAFOL [Concomitant]
     Route: 048
  8. SOMAC (AUSTRALIA) [Concomitant]
     Indication: GASTROOESOPHAGEAL REFLUX DISEASE
     Route: 048
  9. COVERSYL [Concomitant]
     Indication: BLOOD PRESSURE INCREASED
     Route: 048
  10. NOTEN [Concomitant]
     Indication: BLOOD PRESSURE INCREASED
     Route: 048
  11. ASPIRIN [Concomitant]
     Route: 048
  12. MIRTAZAPINE [Concomitant]
     Route: 048
  13. NOVORAPID [Concomitant]
     Indication: DIABETES MELLITUS
     Route: 058
  14. NOVORAPID [Concomitant]
     Route: 058

REACTIONS (3)
  - Diabetic foot [Recovering/Resolving]
  - Basal cell carcinoma [Recovering/Resolving]
  - Weight increased [Unknown]
